FAERS Safety Report 9893120 (Version 3)
Quarter: 2014Q2

REPORT INFORMATION
  Report Type: Spontaneous
  Country: US (occurrence: US)
  Receive Date: 20140213
  Receipt Date: 20140411
  Transmission Date: 20141212
  Serious: Yes (Other)
  Sender: FDA-Public Use
  Company Number: US-BEH-2013035825

PATIENT
  Age: 19 Year
  Sex: Female
  Weight: 81 kg

DRUGS (1)
  1. BERINERT [Suspect]
     Indication: HEREDITARY ANGIOEDEMA
     Dosage: STARTED 2011
     Route: 042

REACTIONS (2)
  - Appendicitis [Recovered/Resolved]
  - Exposure during pregnancy [Recovered/Resolved]
